FAERS Safety Report 5599976-9 (Version None)
Quarter: 2007Q4

REPORT INFORMATION
  Report Type: 
  Country: None (occurrence: None)
  Receive Date: 20071226
  Receipt Date: 20070523
  Transmission Date: 20080405
  Serious: No
  Sender: FDA-Public Use
  Company Number: 241937

PATIENT
  Age: 27 Year
  Sex: Female
  Weight: 54.4 kg

DRUGS (1)
  1. RAPTIVA [Suspect]
     Indication: PSORIASIS
     Dosage: 0.5 ML, 1/WEEK, SUBCUTANEOUS
     Route: 058
     Dates: start: 20070322, end: 20070522

REACTIONS (1)
  - OEDEMA PERIPHERAL [None]
